FAERS Safety Report 6946034-4 (Version None)
Quarter: 2010Q3

REPORT INFORMATION
  Report Type: 
  Country: None (occurrence: None)
  Receive Date: 20100827
  Receipt Date: 20100819
  Transmission Date: 20110219
  Serious: Yes (Hospitalization)
  Sender: FDA-Public Use
  Company Number: US-AMGEN-QUU408125

PATIENT
  Sex: Male
  Weight: 92.9 kg

DRUGS (1)
  1. NPLATE [Suspect]
     Indication: IDIOPATHIC THROMBOCYTOPENIC PURPURA
     Route: 058
     Dates: start: 20090209, end: 20090413

REACTIONS (3)
  - CORONARY ARTERY BYPASS [None]
  - LUNG WEDGE RESECTION [None]
  - POST PROCEDURAL COMPLICATION [None]
